FAERS Safety Report 5367135-0 (Version None)
Quarter: 2007Q2

REPORT INFORMATION
  Report Type: 
  Country: None (occurrence: None)
  Receive Date: 20070622
  Receipt Date: 20060921
  Transmission Date: 20071010
  Serious: No
  Sender: FDA-Public Use
  Company Number: US-BRISTOL-MYERS SQUIBB COMPANY-13517636

PATIENT

DRUGS (1)
  1. SINEMET [Suspect]

REACTIONS (2)
  - ANORGASMIA [None]
  - LIBIDO DECREASED [None]
